FAERS Safety Report 7170728-1 (Version None)
Quarter: 2010Q4

REPORT INFORMATION
  Report Type: 
  Country: None (occurrence: None)
  Receive Date: 20101206
  Receipt Date: 20101122
  Transmission Date: 20110411
  Serious: Yes (Life-Threatening, Hospitalization, Disabling, Other)
  Sender: FDA-Public Use
  Company Number: DSU-2010-06411

PATIENT
  Age: 60 Year
  Sex: Female
  Weight: 66.8602 kg

DRUGS (9)
  1. BENICAR [Suspect]
     Indication: FACTOR V DEFICIENCY
     Dosage: PER ORAL
     Route: 048
  2. ARIXTRA (FONDAPARINUX SODIUM) (FONDAPARINUX SODIUM) (FONDAPARINUX SODI [Suspect]
     Indication: FACTOR V LEIDEN MUTATION
     Dosage: SUBCUTANEOUS
     Route: 058
     Dates: end: 20100101
  3. CRESTOR [Suspect]
     Indication: HYPERLIPIDAEMIA
     Dates: end: 20100101
  4. ANTIHYPERTENSIVE MEDICATION (INGREDIENTS UNKNOWN) (ANTIHYPERTENSIVES) [Suspect]
     Indication: HYPERTENSION
  5. ASPIRIN [Suspect]
     Indication: PRODUCT USED FOR UNKNOWN INDICATION
  6. ALL OTHER THERAPEUTIC PRODUCTS [Concomitant]
  7. VALIUM [Concomitant]
  8. FOSAMAX [Concomitant]
  9. MULTIPLE UNSPECIFIED MEDICATIONS (ALL OTHER THERAPEUTIC PRODUCTS) [Concomitant]

REACTIONS (10)
  - ANAEMIA [None]
  - BACTERIAL TEST POSITIVE [None]
  - CRYSTAL URINE PRESENT [None]
  - HAEMORRHAGE [None]
  - HYPOTENSION [None]
  - HYPOVOLAEMIA [None]
  - OFF LABEL USE [None]
  - RENAL FAILURE ACUTE [None]
  - TACHYCARDIA [None]
  - WHITE BLOOD CELLS URINE POSITIVE [None]
